FAERS Safety Report 15859555 (Version 1)
Quarter: 2019Q1

REPORT INFORMATION
  Report Type: Spontaneous
  Country: FR (occurrence: FR)
  Receive Date: 20190123
  Receipt Date: 20190123
  Transmission Date: 20190417
  Serious: Yes (Other)
  Sender: FDA-Public Use
  Company Number: FR-GILEAD-2019-0385727

PATIENT
  Age: 49 Year
  Sex: Female
  Weight: 86 kg

DRUGS (9)
  1. SODIUM ALGINATE;SODIUM BICARBONATE [Concomitant]
  2. EXFORGE [Concomitant]
     Active Substance: AMLODIPINE BESYLATE\VALSARTAN
  3. EPCLUSA [Suspect]
     Active Substance: SOFOSBUVIR\VELPATASVIR
     Indication: CHRONIC HEPATITIS C
     Dosage: UNK
     Route: 065
     Dates: start: 20180619, end: 20180917
  4. VICTOZA [Concomitant]
     Active Substance: LIRAGLUTIDE
  5. LEVEMIR [Concomitant]
     Active Substance: INSULIN DETEMIR
  6. GLUCOPHAGE [Concomitant]
     Active Substance: METFORMIN HYDROCHLORIDE
  7. PRAVASTATIN. [Concomitant]
     Active Substance: PRAVASTATIN
  8. LANTUS [Concomitant]
     Active Substance: INSULIN GLARGINE
  9. APIDRA [Concomitant]
     Active Substance: INSULIN GLULISINE

REACTIONS (3)
  - Genotype drug resistance test positive [Unknown]
  - Drug ineffective [Unknown]
  - Hepatitis C [Unknown]
